FAERS Safety Report 25141531 (Version 2)
Quarter: 2025Q2

REPORT INFORMATION
  Report Type: Spontaneous
  Country: US (occurrence: US)
  Receive Date: 20250331
  Receipt Date: 20250411
  Transmission Date: 20250716
  Serious: No
  Sender: FRESENIUS KABI
  Company Number: US-FreseniusKabi-FK202504810

PATIENT
  Age: 53 Year
  Sex: Female
  Weight: 71.67 kg

DRUGS (6)
  1. DIPRIVAN [Suspect]
     Active Substance: PROPOFOL
     Indication: Nerve block
     Route: 042
     Dates: start: 20250319, end: 20250319
  2. DIPRIVAN [Suspect]
     Active Substance: PROPOFOL
     Indication: Sedative therapy
  3. Pepcid 20mg [Concomitant]
     Indication: Product used for unknown indication
  4. Reglan 5mg [Concomitant]
     Indication: Product used for unknown indication
  5. LR IV Fluids [Concomitant]
     Indication: Product used for unknown indication
     Route: 042
  6. OMNIPAQUE [Concomitant]
     Active Substance: IOHEXOL
     Indication: Product used for unknown indication

REACTIONS (1)
  - Chills [Recovered/Resolved]

NARRATIVE: CASE EVENT DATE: 20250319
